FAERS Safety Report 13462828 (Version 2)
Quarter: 2017Q2

REPORT INFORMATION
  Report Type: Spontaneous
  Country: IT (occurrence: IT)
  Receive Date: 20170420
  Receipt Date: 20170505
  Transmission Date: 20170830
  Serious: Yes (Death, Hospitalization)
  Sender: FDA-Public Use
  Company Number: IT-B.I. PHARMACEUTICALS,INC./RIDGEFIELD-2017-BI-022296

PATIENT
  Sex: Male

DRUGS (2)
  1. CARDIOASPIRIN [Concomitant]
     Active Substance: ASPIRIN
     Indication: MYOCARDIAL ISCHAEMIA
     Route: 065
  2. OFEV [Suspect]
     Active Substance: NINTEDANIB
     Indication: IDIOPATHIC PULMONARY FIBROSIS
     Dosage: 2 DOSAGE FORM
     Route: 065
     Dates: start: 20161216, end: 20161222

REACTIONS (7)
  - Intestinal obstruction [Fatal]
  - Respiratory failure [Fatal]
  - Pyrexia [Fatal]
  - Constipation [Fatal]
  - General physical health deterioration [Fatal]
  - Nausea [Fatal]
  - Malaise [Fatal]
